FAERS Safety Report 11928720 (Version 2)
Quarter: 2016Q1

REPORT INFORMATION
  Report Type: Spontaneous
  Country: US (occurrence: US)
  Receive Date: 20160119
  Receipt Date: 20160128
  Transmission Date: 20160526
  Serious: Yes (Hospitalization)
  Sender: FDA-Public Use
  Company Number: US-ACTELION-A-US2016-129945

PATIENT
  Age: 62 Year
  Sex: Male

DRUGS (3)
  1. AMBRISENTAN [Concomitant]
     Active Substance: AMBRISENTAN
     Dosage: 10 MG, QD
  2. VELETRI [Suspect]
     Active Substance: EPOPROSTENOL
     Indication: PULMONARY ARTERIAL HYPERTENSION
     Dosage: 28 NG/KG, PER MIN
     Route: 042
     Dates: start: 20150618
  3. SILDENAFIL. [Concomitant]
     Active Substance: SILDENAFIL
     Dosage: 60 MG, QD

REACTIONS (6)
  - Diarrhoea [Unknown]
  - Pneumonia [Unknown]
  - Lung infiltration [Unknown]
  - Nasopharyngitis [Unknown]
  - Dyspnoea [Unknown]
  - Headache [Unknown]
